FAERS Safety Report 4554497-7 (Version None)
Quarter: 2005Q1

REPORT INFORMATION
  Report Type: 
  Country: None (occurrence: None)
  Receive Date: 20050114
  Receipt Date: 20040419
  Transmission Date: 20050727
  Serious: Yes (Hospitalization)
  Sender: FDA-Public Use
  Company Number: PHFR2004GB01820

PATIENT
  Age: 39 Year
  Sex: Male

DRUGS (6)
  1. DICLOFENAC SODIUM [Suspect]
     Dosage: 50 MG, BID, ORAL
     Route: 048
  2. ACETYLSALICYLIC ACID SRT [Suspect]
     Dosage: 75 MG, QD, ORAL
     Route: 048
     Dates: start: 20040311, end: 20040407
  3. RAMIPRIL [Concomitant]
  4. ISM  GENERICON (ISOSORBIDE MONONITRATE) [Concomitant]
  5. ATORVASTATIN (ATORVASTATIN) [Concomitant]
  6. CLOPIDOGREL BISULFATE [Concomitant]

REACTIONS (2)
  - GASTRITIS [None]
  - HAEMATEMESIS [None]
